FAERS Safety Report 8458899-8 (Version None)
Quarter: 2012Q2

REPORT INFORMATION
  Report Type: 
  Country: None (occurrence: None)
  Receive Date: 20120622
  Receipt Date: 20120613
  Transmission Date: 20120825
  Serious: Yes (Hospitalization)
  Sender: FDA-Public Use
  Company Number: US-BAYER-2012-018971

PATIENT
  Age: 44 Year
  Sex: Female
  Weight: 95.238 kg

DRUGS (5)
  1. METFORMIN HCL [Concomitant]
  2. HYDRALAZINE HYDROCHLORIDE [Concomitant]
  3. DROSPIRENONE AND ETHINYL ESTRADIOL [Suspect]
     Dosage: UNK
     Dates: start: 20070101
  4. DROSPIRENONE AND ETHINYL ESTRADIOL [Suspect]
     Dosage: UNK
     Dates: start: 20090405, end: 20091012
  5. GLYBURIDE [Concomitant]

REACTIONS (3)
  - CEREBROVASCULAR ACCIDENT [None]
  - PAIN [None]
  - PULMONARY EMBOLISM [None]
